FAERS Safety Report 5801140-2 (Version None)
Quarter: 2008Q3

REPORT INFORMATION
  Report Type: 
  Country: None (occurrence: None)
  Receive Date: 20080707
  Receipt Date: 20080624
  Transmission Date: 20090109
  Serious: Yes (Other)
  Sender: FDA-Public Use
  Company Number: PHHY2008TW12115

PATIENT
  Sex: Male

DRUGS (1)
  1. TOFRANIL [Suspect]
     Indication: MAJOR DEPRESSION
     Dosage: 25 MG X 6 TABLETS
     Route: 048

REACTIONS (2)
  - DRUG DEPENDENCE [None]
  - WEIGHT INCREASED [None]
